FAERS Safety Report 5528192-1 (Version None)
Quarter: 2007Q4

REPORT INFORMATION
  Report Type: 
  Country: None (occurrence: None)
  Receive Date: 20071128
  Receipt Date: 20071119
  Transmission Date: 20080405
  Serious: Yes (Other)
  Sender: FDA-Public Use
  Company Number: DE-PFIZER INC-2007097552

PATIENT
  Age: 31 Year
  Sex: Female

DRUGS (2)
  1. ZELDOX (CAPSULES) [Suspect]
     Indication: SCHIZOPHRENIA, PARANOID TYPE
     Dosage: DAILY DOSE:60MG
     Route: 048
  2. TRANXILIUM [Concomitant]
     Dosage: DAILY DOSE:100MG
     Route: 048
     Dates: start: 20070901, end: 20071001

REACTIONS (1)
  - ABORTION SPONTANEOUS [None]
